FAERS Safety Report 17734916 (Version 1)
Quarter: 2020Q2

REPORT INFORMATION
  Report Type: Spontaneous
  Country: ES (occurrence: ES)
  Receive Date: 20200501
  Receipt Date: 20200501
  Transmission Date: 20200714
  Serious: Yes (Hospitalization)
  Sender: FDA-Public Use
  Company Number: ES-MYLANLABS-2020M1042756

PATIENT
  Age: 47 Year
  Sex: Female

DRUGS (6)
  1. RIVOTRIL [Concomitant]
     Active Substance: CLONAZEPAM
     Dosage: 2 MILLIGRAM, Q8H
     Route: 048
     Dates: start: 2014
  2. TRANXILIUM [Concomitant]
     Active Substance: CLORAZEPATE DIPOTASSIUM
     Indication: ANXIETY
     Dosage: 10 MILLIGRAM, Q8H
     Route: 048
     Dates: start: 2014
  3. BUPROPIONE SANDOZ [Interacting]
     Active Substance: BUPROPION HYDROCHLORIDE
     Indication: DEPRESSION
     Dosage: 150 MILLIGRAM, QD
     Route: 048
     Dates: start: 20191105, end: 20191124
  4. PAROXETINE. [Suspect]
     Active Substance: PAROXETINE
     Indication: DEPRESSION
     Dosage: 20 MILLIGRAM, QD
     Route: 048
     Dates: start: 201911
  5. VANDRAL [Interacting]
     Active Substance: VENLAFAXINE HYDROCHLORIDE
     Indication: DEPRESSION
     Dosage: 75 MILLIGRAM, QD
     Route: 048
     Dates: start: 201909, end: 201911
  6. MOTILIUM [Concomitant]
     Active Substance: DOMPERIDONE
     Indication: NAUSEA
     Dosage: UNK
     Route: 048
     Dates: start: 201908, end: 201908

REACTIONS (2)
  - Seizure [Recovered/Resolved with Sequelae]
  - Drug interaction [Unknown]

NARRATIVE: CASE EVENT DATE: 20191124
